FAERS Safety Report 5642599-3 (Version None)
Quarter: 2008Q1

REPORT INFORMATION
  Report Type: 
  Country: None (occurrence: None)
  Receive Date: 20080227
  Receipt Date: 20080227
  Transmission Date: 20080703
  Serious: Yes (Hospitalization)
  Sender: FDA-Public Use
  Company Number: None

PATIENT
  Sex: Female
  Weight: 63.5036 kg

DRUGS (6)
  1. GEODON [Suspect]
     Indication: BIPOLAR DISORDER
     Dosage: 40MG PO QD  (THERAPY DATES: PRIOR TO ADMISSION)
     Route: 048
  2. LAMICTAL [Concomitant]
  3. XANAX XR [Concomitant]
  4. PROZAC [Concomitant]
  5. LIPITOR [Concomitant]
  6. MIRALAX [Concomitant]

REACTIONS (3)
  - COGWHEEL RIGIDITY [None]
  - GAIT DISTURBANCE [None]
  - TREMOR [None]
